FAERS Safety Report 9303131 (Version 2)
Quarter: 2013Q2

REPORT INFORMATION
  Report Type: Spontaneous
  Country: US (occurrence: US)
  Receive Date: 20130522
  Receipt Date: 20130527
  Transmission Date: 20140414
  Serious: Yes (Hospitalization)
  Sender: FDA-Public Use
  Company Number: PHEH2013US011115

PATIENT
  Sex: Male

DRUGS (10)
  1. EXELON PATCH [Suspect]
     Dosage: 4.6 MG, QD
     Route: 062
     Dates: start: 201301
  2. EXELON PATCH [Suspect]
     Dosage: UNK UKN, UNK
  3. EXELON PATCH [Suspect]
     Dosage: 9.5 MG, DAILY
     Route: 062
  4. NAMENDA [Concomitant]
  5. COREG [Concomitant]
  6. PROZAC [Concomitant]
  7. PROSCAR [Concomitant]
  8. ASPIRIN [Concomitant]
     Dosage: 81 MG, UNK
  9. LOSARTAN [Concomitant]
  10. PUERNOL [Concomitant]

REACTIONS (3)
  - Disorientation [Unknown]
  - Memory impairment [Unknown]
  - Anxiety [Unknown]
